FAERS Safety Report 5360193-9 (Version None)
Quarter: 2007Q2

REPORT INFORMATION
  Report Type: 
  Country: None (occurrence: None)
  Receive Date: 20070618
  Receipt Date: 20070607
  Transmission Date: 20071010
  Serious: Yes (Other)
  Sender: FDA-Public Use
  Company Number: PHHO2007AR09811

PATIENT
  Age: 16 Year
  Sex: Male

DRUGS (1)
  1. CLOZAPINE [Suspect]
     Dosage: 300 MG, QD
     Route: 048
     Dates: start: 20070428, end: 20070603

REACTIONS (4)
  - ARRHYTHMIA [None]
  - HEPATIC ENZYME INCREASED [None]
  - HYPERTENSION [None]
  - TACHYCARDIA [None]
